FAERS Safety Report 20246574 (Version 1)
Quarter: 2021Q4

REPORT INFORMATION
  Report Type: Spontaneous
  Country: US (occurrence: None)
  Receive Date: 20211228
  Receipt Date: 20211228
  Transmission Date: 20220303
  Serious: Yes (Hospitalization, Disabling, Other)
  Sender: FDA-Public Use
  Company Number: None

PATIENT
  Age: 44 Year
  Sex: Male
  Weight: 90 kg

DRUGS (1)
  1. SYSTANE (HYPROMELLOSE 2910 (4000 MPA.S)) [Suspect]
     Active Substance: HYPROMELLOSE 2910 (4000 MPA.S)
     Indication: Eye injury
     Dosage: OTHER QUANTITY : 1 DROP(S);?
     Dates: start: 20211209, end: 20211211

REACTIONS (3)
  - Chemical burn of skin [None]
  - Erythema [None]
  - Deformity [None]

NARRATIVE: CASE EVENT DATE: 20211211
